FAERS Safety Report 10183567 (Version 1)
Quarter: 2014Q2

REPORT INFORMATION
  Report Type: Spontaneous
  Country: US (occurrence: None)
  Receive Date: 20140425
  Receipt Date: 20140425
  Transmission Date: 20141212
  Serious: No
  Sender: FDA-Public Use
  Company Number: AP356-00421-SPO-US

PATIENT
  Age: 62 Year
  Sex: Female
  Weight: 75.2 kg

DRUGS (4)
  1. BELVIQ (LORCASERIN HYDROCHLORIDE) [Suspect]
     Indication: WEIGHT DECREASED
     Route: 048
     Dates: start: 201401, end: 201401
  2. DIOVAN (VALSARTAN) [Concomitant]
  3. SIMVASTATIN (SIMVASTATIN) [Concomitant]
  4. CLONAZEPAM (CLONAZEPAM) (CLONAZEPAM) [Concomitant]

REACTIONS (4)
  - Pain [None]
  - Dizziness [None]
  - Mental impairment [None]
  - Fatigue [None]
